FAERS Safety Report 6466163-1 (Version None)
Quarter: 2009Q4

REPORT INFORMATION
  Report Type: 
  Country: None (occurrence: None)
  Receive Date: 20091201
  Receipt Date: 20091201
  Transmission Date: 20100525
  Serious: Yes (Life-Threatening, Other)
  Sender: FDA-Public Use
  Company Number: None

PATIENT
  Age: 54 Year
  Sex: Male
  Weight: 90.7194 kg

DRUGS (2)
  1. TRILIPIX [Suspect]
     Indication: BLOOD CHOLESTEROL
     Dosage: ONE 135MG TABLET PER DAY DAILY PO
     Route: 048
     Dates: start: 20090917, end: 20091101
  2. CRESTOR [Suspect]
     Indication: BLOOD CHOLESTEROL
     Dosage: ONE 40 MG TABLET DAILY DAILY PO
     Route: 048
     Dates: start: 20090917, end: 20091101

REACTIONS (7)
  - ASTHENIA [None]
  - CHROMATURIA [None]
  - MYALGIA [None]
  - NAUSEA [None]
  - RENAL IMPAIRMENT [None]
  - RHABDOMYOLYSIS [None]
  - TENDERNESS [None]
